FAERS Safety Report 9714208 (Version 2)
Quarter: 2015Q3

REPORT INFORMATION
  Report Type: Spontaneous
  Country: US (occurrence: US)
  Receive Date: 20131126
  Receipt Date: 20150803
  Transmission Date: 20151125
  Serious: No
  Sender: FDA-Public Use
  Company Number: US-GILEAD-2008-0019341

PATIENT
  Age: 40 Year
  Sex: Female
  Weight: 56.7 kg

DRUGS (13)
  1. REVATIO [Concomitant]
     Active Substance: SILDENAFIL CITRATE
  2. LASIX [Concomitant]
     Active Substance: FUROSEMIDE
  3. LOPERAMIDE [Concomitant]
     Active Substance: LOPERAMIDE
  4. FLOLAN [Concomitant]
     Active Substance: EPOPROSTENOL SODIUM
  5. LETAIRIS [Suspect]
     Active Substance: AMBRISENTAN
     Indication: PULMONARY ARTERIAL HYPERTENSION
     Route: 048
     Dates: start: 20071129
  6. ALDACTONE [Concomitant]
     Active Substance: SPIRONOLACTONE
  7. AMBIEN [Concomitant]
     Active Substance: ZOLPIDEM TARTRATE
  8. MULTIVITAMIN [Concomitant]
     Active Substance: VITAMINS
  9. OXYGEN. [Concomitant]
     Active Substance: OXYGEN
  10. BENADRYL [Concomitant]
     Active Substance: DIPHENHYDRAMINE HYDROCHLORIDE
  11. CLARITIN [Concomitant]
     Active Substance: LORATADINE
  12. LANOXIN [Concomitant]
     Active Substance: DIGOXIN
  13. TYLENOL [Concomitant]
     Active Substance: ACETAMINOPHEN

REACTIONS (8)
  - Nasal discomfort [None]
  - Abdominal pain [None]
  - Throat irritation [None]
  - Nasal congestion [None]
  - Constipation [None]
  - Oedema [None]
  - Palpitations [None]
  - Hot flush [None]
